FAERS Safety Report 21927839 (Version 3)
Quarter: 2023Q1

REPORT INFORMATION
  Report Type: Spontaneous
  Country: JP (occurrence: JP)
  Receive Date: 20230130
  Receipt Date: 20230228
  Transmission Date: 20230417
  Serious: Yes (Disabling, Other)
  Sender: FDA-Public Use
  Company Number: JP-MH-2023M1004766AA

PATIENT
  Age: 77 Year
  Sex: Female
  Weight: 63 kg

DRUGS (5)
  1. CARBOPLATIN [Suspect]
     Active Substance: CARBOPLATIN
     Indication: Uterine cancer
     Dosage: 350 MILLIGRAM
     Route: 042
     Dates: start: 20221011, end: 20221011
  2. PACLITAXEL [Suspect]
     Active Substance: PACLITAXEL
     Indication: Uterine cancer
     Dosage: 260 MILLIGRAM(175MG/M2), QD
     Route: 042
     Dates: start: 20221011, end: 20221011
  3. GRANISETRON [Concomitant]
     Active Substance: GRANISETRON
     Indication: Uterine cancer
     Dosage: 3 MILLIGRAM, QD
     Route: 042
     Dates: start: 20221011
  4. DECADRON [Concomitant]
     Active Substance: DEXAMETHASONE
     Indication: Uterine cancer
     Dosage: 19.8 MILLIGRAM, QD
     Route: 042
     Dates: start: 20221011
  5. FAMOTIDINE [Concomitant]
     Active Substance: FAMOTIDINE
     Indication: Uterine cancer
     Dosage: 20 MILLIGRAM, QD
     Route: 042
     Dates: start: 20221011

REACTIONS (9)
  - Cardio-respiratory arrest [Recovered/Resolved]
  - Septic shock [Unknown]
  - Hypovolaemic shock [Unknown]
  - Neutropenia [Unknown]
  - Pneumonitis [Unknown]
  - Ascites [Unknown]
  - Disseminated intravascular coagulation [Unknown]
  - Gastrointestinal necrosis [Recovered/Resolved with Sequelae]
  - Pleural effusion [Unknown]

NARRATIVE: CASE EVENT DATE: 20221017
